FAERS Safety Report 12225100 (Version 2)
Quarter: 2016Q2

REPORT INFORMATION
  Report Type: Spontaneous
  Country: US (occurrence: US)
  Receive Date: 20160331
  Receipt Date: 20160422
  Transmission Date: 20160815
  Serious: No
  Sender: FDA-Public Use
  Company Number: US-TAKEDA-2016MPI002309

PATIENT
  Sex: Male

DRUGS (1)
  1. VELCADE [Suspect]
     Active Substance: BORTEZOMIB
     Indication: PLASMA CELL MYELOMA
     Dosage: 2.1 MG, UNK
     Route: 058

REACTIONS (5)
  - Fatigue [Unknown]
  - Asthenia [Unknown]
  - Poor quality sleep [Unknown]
  - Drug dose omission [Unknown]
  - Gastrointestinal disorder [Unknown]
